FAERS Safety Report 9445782 (Version 2)
Quarter: 2014Q3

REPORT INFORMATION
  Report Type: Spontaneous
  Country: US (occurrence: US)
  Receive Date: 20130807
  Receipt Date: 20140721
  Transmission Date: 20150326
  Serious: Yes (Hospitalization, Other)
  Sender: FDA-Public Use
  Company Number: US-009507513-1307USA017166

PATIENT
  Sex: Female

DRUGS (2)
  1. NUVARING [Suspect]
     Active Substance: ETHINYL ESTRADIOL\ETONOGESTREL
     Indication: MIGRAINE
     Dosage: UNK
     Route: 067
     Dates: start: 200706, end: 201207
  2. NUVARING [Suspect]
     Active Substance: ETHINYL ESTRADIOL\ETONOGESTREL
     Indication: CONTRACEPTION

REACTIONS (6)
  - Hypercoagulation [Unknown]
  - Encephalopathy [Unknown]
  - Ischaemic stroke [Unknown]
  - Dermatitis contact [Unknown]
  - Hypertension [Unknown]
  - Abdominal neoplasm [Unknown]

NARRATIVE: CASE EVENT DATE: 20120614
